FAERS Safety Report 9023771 (Version 1)
Quarter: 2013Q1

REPORT INFORMATION
  Report Type: Spontaneous
  Country: US (occurrence: US)
  Receive Date: 20130121
  Receipt Date: 20130121
  Transmission Date: 20140127
  Serious: No
  Sender: FDA-Public Use
  Company Number: US-PFIZER INC-2013022506

PATIENT
  Sex: Female

DRUGS (2)
  1. ADVIL [Suspect]
     Dosage: UNK
  2. POTASSIUM CHLORIDE [Suspect]
     Dosage: UNK

REACTIONS (2)
  - Drug administration error [Unknown]
  - Arthralgia [Unknown]
